FAERS Safety Report 4606377-6 (Version None)
Quarter: 2005Q2

REPORT INFORMATION
  Report Type: 
  Country: None (occurrence: None)
  Receive Date: 20050303
  Receipt Date: 20050121
  Transmission Date: 20051028
  Serious: No
  Sender: FDA-Public Use
  Company Number: 200510100BWH

PATIENT
  Age: 72 Year
  Sex: Male

DRUGS (3)
  1. LEVITRA [Suspect]
     Indication: ERECTILE DYSFUNCTION
     Dosage: 10 MG ; 2.5 MG  : PRN, ORAL
     Route: 048
     Dates: start: 20041001
  2. LEVITRA [Suspect]
     Indication: ERECTILE DYSFUNCTION
     Dosage: 10 MG ; 2.5 MG  : PRN, ORAL
     Route: 048
     Dates: start: 20041001
  3. ADVIL [Concomitant]

REACTIONS (3)
  - HEAD DISCOMFORT [None]
  - HEADACHE [None]
  - NASAL CONGESTION [None]
